FAERS Safety Report 5676005-X (Version None)
Quarter: 2008Q1

REPORT INFORMATION
  Report Type: 
  Country: None (occurrence: None)
  Receive Date: 20080321
  Receipt Date: 20080318
  Transmission Date: 20080703
  Serious: Yes (Other)
  Sender: FDA-Public Use
  Company Number: JP-SANOFI-SYNTHELABO-A01200803143

PATIENT
  Sex: Male

DRUGS (7)
  1. DECADRON [Concomitant]
     Dosage: UNK
     Dates: start: 20071024, end: 20080303
  2. DEXART [Concomitant]
     Dosage: UNK
     Dates: start: 20070730, end: 20080303
  3. KYTRIL [Concomitant]
     Dosage: UNK
     Dates: start: 20070730, end: 20080303
  4. AVASTIN [Suspect]
     Dosage: UNK
     Route: 041
     Dates: start: 20080303, end: 20080303
  5. ISOVORIN [Suspect]
     Dosage: UNK
     Route: 041
     Dates: start: 20080128, end: 20080128
  6. FLUOROURACIL [Suspect]
     Dosage: UNK
     Route: 042
     Dates: start: 20080128, end: 20080130
  7. ELPLAT [Suspect]
     Indication: COLON CANCER METASTATIC
     Route: 041
     Dates: start: 20080128, end: 20080128

REACTIONS (7)
  - ALANINE AMINOTRANSFERASE INCREASED [None]
  - ASPARTATE AMINOTRANSFERASE INCREASED [None]
  - BLOOD ALKALINE PHOSPHATASE INCREASED [None]
  - GASTROINTESTINAL PERFORATION [None]
  - NAIL DISORDER [None]
  - NAUSEA [None]
  - NEUTROPHIL COUNT DECREASED [None]
